FAERS Safety Report 8765869 (Version 1)
Quarter: 2012Q4

REPORT INFORMATION
  Report Type: 
  Country: US (occurrence: US)
  Receive Date: 20120904
  Receipt Date: 20120904
  Transmission Date: 20130627
  Serious: Yes (Other)
  Sender: FDA-Public Use
  Company Number: US-009507513-1208USA008101

PATIENT

DRUGS (3)
  1. VICTRELIS [Suspect]
     Indication: HEPATITIS C
     Dosage: UNK
     Dates: start: 20111111
  2. REBETOL [Suspect]
     Dosage: UNK
     Dates: start: 20111014
  3. INTERFERON ALPHA [Suspect]
     Dosage: UNK
     Dates: start: 20111014

REACTIONS (6)
  - Pneumonia [Unknown]
  - Dehydration [Unknown]
  - Chromaturia [Unknown]
  - Dysgeusia [Unknown]
  - Abdominal discomfort [Unknown]
  - Cough [Unknown]
